FAERS Safety Report 14138594 (Version 3)
Quarter: 2017Q4

REPORT INFORMATION
  Report Type: Report from Study
  Country: US (occurrence: US)
  Receive Date: 20171027
  Receipt Date: 20171212
  Transmission Date: 20180321
  Serious: Yes (Hospitalization)
  Sender: FDA-Public Use
  Company Number: US-BAUSCH-BL-2017-029493

PATIENT
  Age: 80 Year
  Sex: Male

DRUGS (2)
  1. PROVENGE [Suspect]
     Active Substance: SIPULEUCEL-T
     Indication: PROSTATE CANCER
     Route: 042
     Dates: start: 20170922, end: 20170922
  2. PROVENGE [Suspect]
     Active Substance: SIPULEUCEL-T
     Route: 042
     Dates: start: 20171006, end: 20171006

REACTIONS (4)
  - Dehydration [Unknown]
  - Diarrhoea [Unknown]
  - Urinary tract infection [Unknown]
  - Toxic shock syndrome [Unknown]

NARRATIVE: CASE EVENT DATE: 20170925
